FAERS Safety Report 7398461-1 (Version None)
Quarter: 2011Q2

REPORT INFORMATION
  Report Type: 
  Country: None (occurrence: None)
  Receive Date: 20110407
  Receipt Date: 20110329
  Transmission Date: 20111010
  Serious: Yes (Hospitalization)
  Sender: FDA-Public Use
  Company Number: US-BIOGENIDEC-2010BI028487

PATIENT
  Sex: Male

DRUGS (2)
  1. COPAXONE [Concomitant]
  2. AVONEX [Suspect]
     Indication: MULTIPLE SCLEROSIS
     Route: 030
     Dates: end: 20100815

REACTIONS (3)
  - MULTIPLE SCLEROSIS [None]
  - CORONARY ARTERIAL STENT INSERTION [None]
  - CAROTID ARTERY OCCLUSION [None]
